FAERS Safety Report 5736900-X (Version None)
Quarter: 2008Q2

REPORT INFORMATION
  Report Type: 
  Country: None (occurrence: None)
  Receive Date: 20080509
  Receipt Date: 20080429
  Transmission Date: 20081010
  Serious: Yes (Hospitalization, Other)
  Sender: FDA-Public Use
  Company Number: 062-21880-07110436

PATIENT
  Age: 69 Year
  Sex: Male
  Weight: 110 kg

DRUGS (13)
  1. REVLIMID [Suspect]
     Indication: MULTIPLE MYELOMA
     Dosage: 25 MG, 1 IN 1 D, ORAL; 15 MG, 1 IN 1 D, ORAL; 25 MG, 1 IN 1 D, ORAL
     Route: 048
     Dates: start: 20070924, end: 20071020
  2. REVLIMID [Suspect]
     Indication: MULTIPLE MYELOMA
     Dosage: 25 MG, 1 IN 1 D, ORAL; 15 MG, 1 IN 1 D, ORAL; 25 MG, 1 IN 1 D, ORAL
     Route: 048
     Dates: start: 20071030, end: 20071213
  3. REVLIMID [Suspect]
     Indication: MULTIPLE MYELOMA
     Dosage: 25 MG, 1 IN 1 D, ORAL; 15 MG, 1 IN 1 D, ORAL; 25 MG, 1 IN 1 D, ORAL
     Route: 048
     Dates: start: 20080204, end: 20080224
  4. DEXAMETHASONE [Concomitant]
  5. TYROXIN (LEVOTHYROXINE SODIUM) [Concomitant]
  6. ENOXAPARIN SODIUM [Concomitant]
  7. LEVOFLOXACIN [Concomitant]
  8. FUROSEMIDE [Concomitant]
  9. METOPROLOL TARTRATE [Concomitant]
  10. LACTULOSE [Concomitant]
  11. AMLOBETA (AMLODIPINE MESILATE) [Concomitant]
  12. RAMIPRIL [Concomitant]
  13. MORPHINE [Concomitant]

REACTIONS (26)
  - APHASIA [None]
  - ARTICULAR CALCIFICATION [None]
  - ASTHENIA [None]
  - ATAXIA [None]
  - CHEST X-RAY ABNORMAL [None]
  - DIARRHOEA [None]
  - DYSPNOEA [None]
  - FATIGUE [None]
  - FEBRILE NEUTROPENIA [None]
  - HAEMOGLOBIN DECREASED [None]
  - HYPERHIDROSIS [None]
  - HYPERTENSION [None]
  - INAPPROPRIATE SCHEDULE OF DRUG ADMINISTRATION [None]
  - LEUKOPENIA [None]
  - MUCOSAL INFLAMMATION [None]
  - MUSCLE SPASMS [None]
  - ORAL HERPES [None]
  - OVERDOSE [None]
  - PERIORBITAL OEDEMA [None]
  - POLYNEUROPATHY [None]
  - PSEUDARTHROSIS [None]
  - RENAL FAILURE ACUTE [None]
  - SEPSIS [None]
  - SOMNOLENCE [None]
  - THROMBOCYTOPENIA [None]
  - TRISMUS [None]
